FAERS Safety Report 25593609 (Version 2)
Quarter: 2025Q3

REPORT INFORMATION
  Report Type: Spontaneous
  Country: JP (occurrence: JP)
  Receive Date: 20250722
  Receipt Date: 20250916
  Transmission Date: 20251021
  Serious: Yes (Death, Other)
  Sender: GLAXOSMITHKLINE
  Company Number: JP-GSK-JP2025092184

PATIENT
  Sex: Male

DRUGS (1)
  1. MOMELOTINIB [Suspect]
     Active Substance: MOMELOTINIB
     Indication: Myelofibrosis

REACTIONS (1)
  - Death [Fatal]
